FAERS Safety Report 13347028 (Version 2)
Quarter: 2017Q4

REPORT INFORMATION
  Report Type: Spontaneous
  Country: US (occurrence: US)
  Receive Date: 20170317
  Receipt Date: 20171003
  Transmission Date: 20180320
  Serious: Yes (Hospitalization)
  Sender: FDA-Public Use
  Company Number: US-SA-2017SA039677

PATIENT
  Age: 71 Year
  Sex: Female
  Weight: 79.4 kg

DRUGS (6)
  1. MULTAQ [Suspect]
     Active Substance: DRONEDARONE
     Indication: CARDIAC FLUTTER
     Dosage: 8 YEARS AGO
     Route: 048
     Dates: start: 201010
  2. DEMADEX [Suspect]
     Active Substance: TORSEMIDE
     Route: 065
  3. MULTAQ [Suspect]
     Active Substance: DRONEDARONE
     Indication: HEART RATE IRREGULAR
     Dosage: 8 YEARS AGO
     Route: 048
     Dates: start: 201010
  4. MULTAQ [Suspect]
     Active Substance: DRONEDARONE
     Indication: HEART RATE IRREGULAR
     Route: 048
     Dates: end: 20170316
  5. K-DUR [Suspect]
     Active Substance: POTASSIUM CHLORIDE
     Route: 065
  6. MULTAQ [Suspect]
     Active Substance: DRONEDARONE
     Indication: CARDIAC FLUTTER
     Route: 048
     Dates: end: 20170316

REACTIONS (7)
  - Fluid retention [Recovered/Resolved]
  - Weight increased [Recovered/Resolved]
  - Abdominal distension [Recovered/Resolved]
  - Limb discomfort [Recovered/Resolved]
  - Tremor [Recovered/Resolved]
  - Dyspnoea [Recovered/Resolved]
  - Joint swelling [Recovered/Resolved]
